FAERS Safety Report 11516921 (Version 1)
Quarter: 2015Q3

REPORT INFORMATION
  Report Type: Spontaneous
  Country: US (occurrence: US)
  Receive Date: 20150917
  Receipt Date: 20150917
  Transmission Date: 20151125
  Serious: Yes (Death, Other)
  Sender: FDA-Public Use
  Company Number: US-TAKEDA-2014TUS008194

PATIENT

DRUGS (6)
  1. GLUCOTROL [Concomitant]
     Active Substance: GLIPIZIDE
     Dosage: 10 MG A.M, 5 MG P.M, UNK
  2. LANTUS [Concomitant]
     Active Substance: INSULIN GLARGINE
     Dosage: 35 IU, QD
  3. JANUVIA [Concomitant]
     Active Substance: SITAGLIPTIN PHOSPHATE
     Dosage: 100 MG, UNK
     Dates: start: 20120511, end: 20140506
  4. ACTOS [Suspect]
     Active Substance: PIOGLITAZONE HYDROCHLORIDE
     Indication: TYPE 2 DIABETES MELLITUS
     Dosage: 30 MG, 15 MG, UNK
     Route: 048
     Dates: start: 200306, end: 201404
  5. JANUVIA [Concomitant]
     Active Substance: SITAGLIPTIN PHOSPHATE
     Dosage: 50 MG, UNK
     Dates: start: 20111118, end: 20120416
  6. DIABETA                            /00145301/ [Concomitant]
     Dosage: UNK
     Dates: start: 20030208

REACTIONS (3)
  - Metastatic carcinoma of the bladder [Fatal]
  - Metastases to lung [Fatal]
  - Metastases to liver [Fatal]

NARRATIVE: CASE EVENT DATE: 20140327
